FAERS Safety Report 10355350 (Version 4)
Quarter: 2014Q4

REPORT INFORMATION
  Report Type: Spontaneous
  Country: AR (occurrence: AR)
  Receive Date: 20140731
  Receipt Date: 20141021
  Transmission Date: 20150528
  Serious: Yes (Other)
  Sender: FDA-Public Use
  Company Number: AR-PFIZER INC-2014210719

PATIENT
  Age: 63 Year
  Sex: Female

DRUGS (2)
  1. SUTENT [Suspect]
     Active Substance: SUNITINIB MALATE
     Indication: METASTATIC RENAL CELL CARCINOMA
     Dosage: 50 MG, DAILY, CYCLIC (SCHEME 4/2)
     Dates: start: 20140624, end: 20140718
  2. SUTENT [Suspect]
     Active Substance: SUNITINIB MALATE
     Dosage: 50 MG, DAILY, CYCLIC (2 WEEKS ON, 2 WEEKS OFF)

REACTIONS (11)
  - Tooth infection [Recovering/Resolving]
  - Impaired healing [Recovering/Resolving]
  - Gastric infection [Recovering/Resolving]
  - Swelling face [Recovered/Resolved]
  - Oral discomfort [Recovering/Resolving]
  - Pain [Recovering/Resolving]
  - Onychoclasis [Not Recovered/Not Resolved]
  - Skin discomfort [Not Recovered/Not Resolved]
  - Depressed mood [Recovering/Resolving]
  - Aphthous stomatitis [Recovered/Resolved]
  - Oral infection [Recovered/Resolved]

NARRATIVE: CASE EVENT DATE: 2014
